FAERS Safety Report 8023383-2 (Version None)
Quarter: 2012Q1

REPORT INFORMATION
  Report Type: 
  Country: None (occurrence: None)
  Receive Date: 20120104
  Receipt Date: 20120103
  Transmission Date: 20120608
  Serious: No
  Sender: FDA-Public Use
  Company Number: US-PFIZER INC-2012001621

PATIENT
  Sex: Female

DRUGS (9)
  1. SIMVASTATIN [Concomitant]
     Dosage: UNK
  2. AMLODIPINE [Concomitant]
     Indication: HYPERTENSION
     Dosage: UNK
  3. CALCIUM [Concomitant]
     Dosage: UNK, 2X/DAY
  4. VITAMIN D [Concomitant]
     Dosage: UNK, 2X/DAY
  5. HUMIRA [Concomitant]
     Dosage: UNK
  6. METHOTREXATE [Concomitant]
     Dosage: UNK
  7. LYRICA [Suspect]
     Indication: FIBROMYALGIA
     Dosage: 75MG ONE IN THE MORNING AND TWO IN THE EVENING
     Route: 048
  8. HYDROCHLOROTHIAZIDE [Concomitant]
     Dosage: UNK
  9. FOLIC ACID [Concomitant]
     Dosage: UNK

REACTIONS (1)
  - ALOPECIA [None]
